FAERS Safety Report 5381816-4 (Version None)
Quarter: 2007Q3

REPORT INFORMATION
  Report Type: 
  Country: None (occurrence: None)
  Receive Date: 20070705
  Receipt Date: 20070705
  Transmission Date: 20080115
  Serious: Yes (Hospitalization)
  Sender: FDA-Public Use
  Company Number: None

PATIENT
  Age: 38 Year
  Sex: Female
  Weight: 68.0396 kg

DRUGS (3)
  1. TUSSIN DM-EXPIRED BOTTLE- TOP CARE [Suspect]
     Indication: COUGH
     Dosage: 2 TEASPOONS 1 TIME ONLY PO
     Route: 048
     Dates: start: 20070519, end: 20070519
  2. TUSSIN DM-EXPIRED BOTTLE- TOP CARE [Suspect]
     Indication: RESPIRATORY TRACT CONGESTION
     Dosage: 2 TEASPOONS 1 TIME ONLY PO
     Route: 048
     Dates: start: 20070519, end: 20070519
  3. TUSSIN DM WEISS QUALITY [Suspect]
     Indication: COUGH
     Dosage: 2 TEASPOONS 4X DAILY PO
     Route: 048
     Dates: start: 20070519, end: 20070523

REACTIONS (7)
  - BALANCE DISORDER [None]
  - CONFUSIONAL STATE [None]
  - DYSKINESIA [None]
  - EXPIRED DRUG ADMINISTERED [None]
  - FEELING ABNORMAL [None]
  - PARAESTHESIA [None]
  - TONGUE DISORDER [None]
